FAERS Safety Report 17977059 (Version 2)
Quarter: 2020Q3

REPORT INFORMATION
  Report Type: Report from Study
  Country: US (occurrence: US)
  Receive Date: 20200702
  Receipt Date: 20200724
  Transmission Date: 20201103
  Serious: No
  Sender: FDA-Public Use
  Company Number: NVSC2020US186718

PATIENT
  Sex: Female

DRUGS (1)
  1. ENTRESTO [Suspect]
     Active Substance: SACUBITRIL\VALSARTAN
     Indication: CARDIAC FAILURE CHRONIC
     Dosage: UNK UNK, UNKNOWN
     Route: 065

REACTIONS (4)
  - Heart rate increased [Unknown]
  - Brain natriuretic peptide increased [Unknown]
  - Heart rate irregular [Unknown]
  - Hypertension [Unknown]
